FAERS Safety Report 7088150-5 (Version None)
Quarter: 2010Q4

REPORT INFORMATION
  Report Type: 
  Country: None (occurrence: None)
  Receive Date: 20101108
  Receipt Date: 20101028
  Transmission Date: 20110411
  Serious: Yes (Other)
  Sender: FDA-Public Use
  Company Number: NL-ASTRAZENECA-2010SE49397

PATIENT
  Age: 25637 Day
  Sex: Female

DRUGS (11)
  1. NEXIUM [Suspect]
     Route: 048
  2. MAGNESIUM [Concomitant]
  3. SPIRIVA [Concomitant]
     Dosage: DAILY ONE INHALATION
     Route: 055
  4. THYRAX [Concomitant]
     Route: 048
  5. CALC CHEW [Concomitant]
     Route: 048
  6. SYMBICORT [Concomitant]
     Dosage: 200/6 UG 1 INHALATION
     Route: 055
  7. ASCAL [Concomitant]
     Route: 048
  8. LAXTRA/MOVICOLON [Concomitant]
     Route: 065
  9. LEVOMEPROMAZINE [Concomitant]
     Dosage: HALF TABLET ONCE DAILY
     Route: 048
  10. PSYLLIUMVEZEL [Concomitant]
     Route: 065
  11. ZURE OORDUP+TRIAM [Concomitant]

REACTIONS (1)
  - GASTRIC POLYPS [None]
